FAERS Safety Report 5741163-5 (Version None)
Quarter: 2008Q2

REPORT INFORMATION
  Report Type: 
  Country: None (occurrence: None)
  Receive Date: 20080516
  Receipt Date: 20080508
  Transmission Date: 20081010
  Serious: Yes (Other)
  Sender: FDA-Public Use
  Company Number: GB-PFIZER INC-2008040429

PATIENT
  Age: 33 Year
  Sex: Male
  Weight: 75 kg

DRUGS (4)
  1. CHANTIX [Suspect]
     Indication: SMOKING CESSATION THERAPY
     Route: 048
  2. LANSOPRAZOLE [Concomitant]
     Dosage: DAILY DOSE:30MG-TEXT:DAILY
     Route: 048
  3. THIAMINE [Concomitant]
     Route: 048
  4. VITAMINS [Concomitant]

REACTIONS (3)
  - DIZZINESS [None]
  - LOSS OF CONSCIOUSNESS [None]
  - PARAESTHESIA [None]
